FAERS Safety Report 15419959 (Version 1)
Quarter: 2018Q3

REPORT INFORMATION
  Report Type: Spontaneous
  Country: US (occurrence: US)
  Receive Date: 20180924
  Receipt Date: 20180924
  Transmission Date: 20181010
  Serious: No
  Sender: FDA-Public Use
  Company Number: US-ADAMAS PHARMA, LLC-2018ADA01388

PATIENT
  Age: 70 Year
  Sex: Male

DRUGS (11)
  1. GOCOVRI [Suspect]
     Active Substance: AMANTADINE
     Dosage: 137 MG, 1X/DAY AT BEDTIME
     Route: 048
     Dates: start: 2018
  2. MEMANTINE ER [Concomitant]
     Dosage: 1 CAPSULES, 1X/DAY
     Route: 048
  3. QUETIAPINE. [Concomitant]
     Active Substance: QUETIAPINE
     Dosage: 50 MG, 1X/DAY AT BEDTIME
     Route: 048
  4. SAFINAMIDE MESYLATE [Concomitant]
     Active Substance: SAFINAMIDE MESYLATE
     Dosage: 100 MG, 1X/DAY EVERY MORNING
  5. GOCOVRI [Suspect]
     Active Substance: AMANTADINE
     Dosage: 274 MG, 1X/DAY AT BEDTIME
     Route: 048
     Dates: start: 20180420, end: 2018
  6. SAFINAMIDE MESYLATE [Concomitant]
     Active Substance: SAFINAMIDE MESYLATE
     Dosage: 50 MG, 1X/DAY EVERY MORNING FOR ONE WEEK
  7. CARB/LEVO [Concomitant]
     Active Substance: CARBIDOPA\LEVODOPA
     Dosage: 1 TABLETS, UP TO 6X/DAY
  8. GOCOVRI [Suspect]
     Active Substance: AMANTADINE
     Indication: DYSKINESIA
     Dosage: 137 MG, 1X/DAY AT BEDTIME
     Route: 048
     Dates: start: 201804, end: 20180419
  9. DONEPEZIL. [Concomitant]
     Active Substance: DONEPEZIL
     Dosage: 10 MG, 1X/DAY NIGHTLY
  10. RIVASTIGMINE. [Concomitant]
     Active Substance: RIVASTIGMINE
     Dosage: 1 DOSAGE UNITS, 1X/DAY
     Route: 061
  11. BOTOX [Concomitant]
     Active Substance: ONABOTULINUMTOXINA

REACTIONS (4)
  - Blood pressure increased [Unknown]
  - Balance disorder [Recovering/Resolving]
  - Somnolence [Recovering/Resolving]
  - Dizziness [Recovering/Resolving]

NARRATIVE: CASE EVENT DATE: 201804
